FAERS Safety Report 10234134 (Version 1)
Quarter: 2014Q2

REPORT INFORMATION
  Report Type: Spontaneous
  Country: US (occurrence: US)
  Receive Date: 20140612
  Receipt Date: 20140612
  Transmission Date: 20141212
  Serious: Yes (Other)
  Sender: FDA-Public Use
  Company Number: US-GLAXOSMITHKLINE-A1076687A

PATIENT
  Age: 53 Year
  Sex: Female

DRUGS (1)
  1. FLOLAN [Suspect]
     Indication: PULMONARY ARTERIAL HYPERTENSION
     Dosage: 38.88NGKM CONTINUOUS
     Route: 042
     Dates: start: 20130703

REACTIONS (2)
  - Lung infection [Unknown]
  - Nasopharyngitis [Unknown]
